FAERS Safety Report 22828863 (Version 3)
Quarter: 2023Q4

REPORT INFORMATION
  Report Type: Spontaneous
  Country: US (occurrence: US)
  Receive Date: 20230816
  Receipt Date: 20231115
  Transmission Date: 20240110
  Serious: No
  Sender: FDA-Public Use
  Company Number: US-SA-SAC20230811001276

PATIENT
  Age: 16 Year
  Sex: Female

DRUGS (1)
  1. DUPIXENT [Suspect]
     Active Substance: DUPILUMAB
     Indication: Dermatitis atopic
     Dosage: 300 MG, QOW
     Route: 058

REACTIONS (5)
  - Skin discolouration [Recovered/Resolved]
  - Eosinophil count increased [Unknown]
  - Dermatitis atopic [Recovered/Resolved]
  - Rash macular [Recovered/Resolved]
  - Dry skin [Recovered/Resolved]
